FAERS Safety Report 21502258 (Version 1)
Quarter: 2022Q4

REPORT INFORMATION
  Report Type: Report from Study
  Country: US (occurrence: US)
  Receive Date: 20221025
  Receipt Date: 20221025
  Transmission Date: 20230112
  Serious: No
  Sender: FDA-Public Use
  Company Number: US-KADMON-US-KAD-22-00764

PATIENT
  Sex: Female

DRUGS (14)
  1. REZUROCK [Suspect]
     Active Substance: BELUMOSUDIL
     Indication: Chronic graft versus host disease
     Dosage: 200 MILLIGRAM, BID, AM AND PM WITH FOOD AND WATER
     Route: 048
     Dates: start: 20220803
  2. LEVOTHYROXINE [Concomitant]
     Active Substance: LEVOTHYROXINE
     Indication: Product used for unknown indication
     Dosage: 150 MICROGRAM, QD
  3. VITAMINS [Concomitant]
     Active Substance: VITAMINS
     Indication: Product used for unknown indication
  4. PREDNISONE [Concomitant]
     Active Substance: PREDNISONE
     Indication: Product used for unknown indication
     Dosage: 12.5 MILLIGRAM, QD
  5. BACTRIM [Concomitant]
     Active Substance: SULFAMETHOXAZOLE\TRIMETHOPRIM
     Indication: Product used for unknown indication
     Dosage: 800-160 MG, BID, 3X WEEK
  6. SODIUM CHLORIDE [Concomitant]
     Active Substance: SODIUM CHLORIDE
     Indication: Product used for unknown indication
     Dosage: 1 GM TAKES 2 DAILY
  7. PANTOPRAZOLE SODIUM [Concomitant]
     Active Substance: PANTOPRAZOLE SODIUM
     Indication: Product used for unknown indication
     Dosage: 40 MILLIGRAM, QD
  8. ACYCLOVIR [Concomitant]
     Active Substance: ACYCLOVIR
     Indication: Product used for unknown indication
     Dosage: 800 MILLIGRAM, QD
  9. ARTIFICIAL TEARS [CARMELLOSE SODIUM] [Concomitant]
     Indication: Product used for unknown indication
     Dosage: UNK, PRN
  10. OYSTER SHELL CALCIUM + VITAMIN D [CALCIUM CARBONATE;COLECALCIFEROL] [Concomitant]
     Indication: Product used for unknown indication
     Dosage: 500-200 MG, QD
  11. CYCLOSPORINE [Concomitant]
     Active Substance: CYCLOSPORINE
     Indication: Product used for unknown indication
     Dosage: 25 MILLIGRAM, TID, 2 IN AM AND 1 IN PM
  12. DEXAMETHASONE [Concomitant]
     Active Substance: DEXAMETHASONE
     Indication: Product used for unknown indication
     Dosage: UNK, PRN
  13. LEXAPRO [Concomitant]
     Active Substance: ESCITALOPRAM OXALATE
     Indication: Product used for unknown indication
     Dosage: 10 MILLIGRAM, QD
  14. DIFLUCAN [Concomitant]
     Active Substance: FLUCONAZOLE
     Indication: Product used for unknown indication
     Dosage: 200 MILLIGRAM, QD

REACTIONS (1)
  - Diarrhoea [Not Recovered/Not Resolved]
